FAERS Safety Report 13105787 (Version 2)
Quarter: 2017Q3

REPORT INFORMATION
  Report Type: Spontaneous
  Country: US (occurrence: US)
  Receive Date: 20170111
  Receipt Date: 20170712
  Transmission Date: 20171127
  Serious: No
  Sender: FDA-Public Use
  Company Number: US-ALKERMES INC.-ALK-2016-003264

PATIENT
  Age: 50 Year
  Sex: Male

DRUGS (1)
  1. ARISTADA [Suspect]
     Active Substance: ARIPIPRAZOLE LAUROXIL
     Indication: SCHIZOPHRENIA
     Dosage: 662 MG, QMO
     Route: 030
     Dates: start: 20160501

REACTIONS (6)
  - General physical health deterioration [Not Recovered/Not Resolved]
  - Tobacco user [Not Recovered/Not Resolved]
  - Apathy [Not Recovered/Not Resolved]
  - Aggression [Not Recovered/Not Resolved]
  - Feeling abnormal [Recovered/Resolved]
  - Hypersomnia [Recovered/Resolved]

NARRATIVE: CASE EVENT DATE: 2016
